FAERS Safety Report 5777938 (Version 3)
Quarter: 2013Q3

REPORT INFORMATION
  Report Type: Spontaneous
  Country: GB (occurrence: GB)
  Receive Date: 20050419
  Receipt Date: 20130904
  Transmission Date: 20140515
  Serious: Yes (Congenital Anomaly)
  Sender: FDA-Public Use
  Company Number: GB-JNJFOC-20050402074

PATIENT
  Age: 1 Year
  Sex: Female
  Weight: 2.34 kg

DRUGS (1)
  1. OVEX [Suspect]
     Indication: ENTEROBIASIS
     Route: 064

REACTIONS (5)
  - Developmental hip dysplasia [Not Recovered/Not Resolved]
  - Arthritis reactive [Recovered/Resolved]
  - Strabismus [Unknown]
  - Upper respiratory tract infection [Recovered/Resolved]
  - Arthropathy [Unknown]
